FAERS Safety Report 14037241 (Version 2)
Quarter: 2017Q4

REPORT INFORMATION
  Report Type: Spontaneous
  Country: IT (occurrence: IT)
  Receive Date: 20171004
  Receipt Date: 20171206
  Transmission Date: 20180321
  Serious: Yes (Death, Other)
  Sender: FDA-Public Use
  Company Number: IT-SUN PHARMACEUTICAL INDUSTRIES LTD-2017R1-151242

PATIENT
  Age: 60 Year
  Sex: Male

DRUGS (2)
  1. BETAMETHASONE. [Suspect]
     Active Substance: BETAMETHASONE
     Indication: OPTIC ISCHAEMIC NEUROPATHY
     Dosage: 2 MG/0.5 ML
     Route: 056
  2. DESMOPRESSIN [Suspect]
     Active Substance: DESMOPRESSIN
     Indication: OPTIC ISCHAEMIC NEUROPATHY
     Dosage: 2 MCG/0.5 ML
     Route: 056

REACTIONS (5)
  - Off label use [Fatal]
  - Cardiac arrest [Fatal]
  - Ocular retrobulbar haemorrhage [Unknown]
  - Acute myocardial infarction [Fatal]
  - Cardio-respiratory arrest [Fatal]
